FAERS Safety Report 20277693 (Version 2)
Quarter: 2022Q1

REPORT INFORMATION
  Report Type: Report from Study
  Country: DE (occurrence: DE)
  Receive Date: 20220103
  Receipt Date: 20220118
  Transmission Date: 20220424
  Serious: Yes (Life-Threatening, Hospitalization, Other)
  Sender: FDA-Public Use
  Company Number: DE-BRISTOL-MYERS SQUIBB COMPANY-BMS-2021-141460

PATIENT
  Age: 66 Year
  Sex: Female

DRUGS (13)
  1. CARFILZOMIB [Suspect]
     Active Substance: CARFILZOMIB
     Indication: Plasma cell myeloma
     Dosage: 57.96 MILLIGRAM
     Route: 042
     Dates: start: 20201030, end: 20211215
  2. LENALIDOMIDE [Suspect]
     Active Substance: LENALIDOMIDE
     Indication: Plasma cell myeloma
     Dosage: 5 MILLIGRAM
     Route: 048
     Dates: start: 20201030, end: 20211217
  3. DEXAMETHASONE [Suspect]
     Active Substance: DEXAMETHASONE
     Indication: Plasma cell myeloma
     Dosage: 20 MILLIGRAM
     Route: 048
     Dates: start: 20201030, end: 20211215
  4. TENOFOVIR [Concomitant]
     Active Substance: TENOFOVIR
     Indication: Hepatitis B
     Dosage: UNK, QD
     Route: 048
     Dates: start: 202102, end: 20211125
  5. ENTECAVIR [Concomitant]
     Active Substance: ENTECAVIR
     Indication: Hepatitis B
     Dosage: 0.5 MILLIGRAM, QD
     Route: 048
     Dates: start: 20211125
  6. ZOMETA [Concomitant]
     Active Substance: ZOLEDRONIC ACID
     Indication: Hypercalcaemia of malignancy
     Dosage: 4 MILLIGRAM, Q4WK
     Route: 042
     Dates: start: 20210304
  7. ASPIRIN [Concomitant]
     Active Substance: ASPIRIN
     Indication: Cardiovascular event prophylaxis
     Dosage: 100 MILLIGRAM, QD
     Route: 048
  8. BISOPROLOL [Concomitant]
     Active Substance: BISOPROLOL
     Indication: Cardiac failure
     Dosage: 5 MILLIGRAM, QD
     Route: 048
     Dates: start: 20201019
  9. MELPHALAN [Concomitant]
     Active Substance: MELPHALAN
     Indication: Chemotherapy
     Dosage: 170 MILLIGRAM, QD
     Route: 042
     Dates: start: 20210706, end: 20210707
  10. MESNA [Concomitant]
     Active Substance: MESNA
     Indication: Haematopoietic stem cell mobilisation
     Dosage: 800 MILLIGRAM, QD
     Route: 042
     Dates: start: 20210212, end: 20210212
  11. CYCLOPHOSPHAMIDE [Concomitant]
     Active Substance: CYCLOPHOSPHAMIDE
     Indication: Haematopoietic stem cell mobilisation
     Dosage: 2500 MILLIGRAM/SQ. METER IN 1 DAY
     Route: 042
     Dates: start: 20210212, end: 20210212
  12. FILGRASTIM [Concomitant]
     Active Substance: FILGRASTIM
     Indication: Haematopoietic stem cell mobilisation
     Dosage: 345 MICROGRAM, QD
     Route: 042
     Dates: start: 20210214, end: 20210214
  13. LIPEGFILGRASTIM [Concomitant]
     Active Substance: LIPEGFILGRASTIM
     Indication: Chemotherapy
     Dosage: 6 MILLIGRAM, QD
     Route: 058
     Dates: start: 20210710, end: 20210710

REACTIONS (2)
  - Hypertension [Not Recovered/Not Resolved]
  - Respiratory failure [Not Recovered/Not Resolved]

NARRATIVE: CASE EVENT DATE: 20211217
